FAERS Safety Report 16623496 (Version 6)
Quarter: 2019Q3

REPORT INFORMATION
  Report Type: Report from Study
  Country: US (occurrence: US)
  Receive Date: 20190724
  Receipt Date: 20190829
  Transmission Date: 20191004
  Serious: Yes (Hospitalization, Other)
  Sender: FDA-Public Use
  Company Number: US-AMGEN-USACT2019117097

PATIENT
  Age: 71 Year
  Sex: Male
  Weight: 75.4 kg

DRUGS (32)
  1. METOPROLOL TARTRATE. [Concomitant]
     Active Substance: METOPROLOL TARTRATE
     Dosage: 25 MILLIGRAM
     Route: 048
     Dates: start: 2002
  2. STIOLTO RESPIMAT [Concomitant]
     Active Substance: OLODATEROL HYDROCHLORIDE\TIOTROPIUM BROMIDE MONOHYDRATE
     Dosage: 2 UNK
     Route: 050
     Dates: start: 2018
  3. XARELTO [Concomitant]
     Active Substance: RIVAROXABAN
     Dosage: 20 MILLIGRAM
     Route: 048
     Dates: start: 2018, end: 20190602
  4. ZOFRAN [Concomitant]
     Active Substance: ONDANSETRON HYDROCHLORIDE
     Dosage: 8 MILLIGRAM
     Route: 048
     Dates: start: 20190605
  5. VITAMIN E [Concomitant]
     Active Substance: .ALPHA.-TOCOPHEROL
     Dosage: 400 UNK
     Route: 048
     Dates: start: 2018
  6. TALIMOGENE LAHERPAREPVEC [Suspect]
     Active Substance: TALIMOGENE LAHERPAREPVEC
     Indication: HEPATIC NEOPLASM
     Dosage: 4 MILLILITER
     Route: 025
     Dates: start: 20190605, end: 20190717
  7. MONTELUKAST [Concomitant]
     Active Substance: MONTELUKAST SODIUM
     Dosage: 10 MILLIGRAM
     Route: 048
     Dates: start: 2016
  8. OSTEO BI-FLEX [CHONDROITIN SULFATE;GLUCOSAMINE HYDROCHLORIDE] [Concomitant]
     Dosage: 1 UNK
     Route: 048
     Dates: start: 2017
  9. ZYRTEC [Concomitant]
     Active Substance: CETIRIZINE HYDROCHLORIDE
     Dosage: 10 MILLIGRAM
     Route: 048
     Dates: start: 2018
  10. IMODIUM [Concomitant]
     Active Substance: LOPERAMIDE HYDROCHLORIDE
     Dosage: 2 UNK
     Route: 048
     Dates: start: 20190618
  11. LEVOTHYROXINE. [Concomitant]
     Active Substance: LEVOTHYROXINE
     Dosage: 100 MICROGRAM
     Route: 048
     Dates: start: 201808
  12. PROCTOZONE HC [Concomitant]
     Active Substance: HYDROCORTISONE
     Dosage: 1 UNK
     Route: 061
     Dates: start: 2018
  13. ALFUZOSIN [Concomitant]
     Active Substance: ALFUZOSIN
     Dosage: 10 MILLIGRAM
     Route: 048
     Dates: start: 2017
  14. OMEPRAZOLE. [Concomitant]
     Active Substance: OMEPRAZOLE
     Dosage: 40 MILLIGRAM
     Route: 048
     Dates: start: 2016
  15. DEMEROL [Concomitant]
     Active Substance: MEPERIDINE HYDROCHLORIDE
     Dosage: 12.5 MILLIGRAM
     Route: 042
     Dates: start: 20190717, end: 20190717
  16. PEMBROLIZUMAB. [Suspect]
     Active Substance: PEMBROLIZUMAB
     Indication: HEPATIC NEOPLASM
     Dosage: 200 MILLIGRAM
     Route: 042
     Dates: start: 20190605, end: 20190717
  17. FISH OIL [Concomitant]
     Active Substance: FISH OIL
     Dosage: 1 UNK
     Route: 048
     Dates: start: 2017
  18. DESONIDE. [Concomitant]
     Active Substance: DESONIDE
     Dosage: 1 UNK
     Route: 061
     Dates: start: 2017
  19. NORMAL SALINE [Concomitant]
     Active Substance: SODIUM CHLORIDE
     Dosage: 1000 MILLILITER
     Route: 042
     Dates: start: 20190710
  20. FENOFIBRATE. [Concomitant]
     Active Substance: FENOFIBRATE
     Dosage: 54 MILLIGRAM
     Route: 048
     Dates: start: 2018
  21. AMIODARONE [Concomitant]
     Active Substance: AMIODARONE
     Dosage: 200 MILLIGRAM
     Route: 048
     Dates: start: 2018
  22. COENZYME Q10 [Concomitant]
     Active Substance: UBIDECARENONE
     Dosage: 200 MILLIGRAM
     Route: 048
     Dates: start: 2017
  23. DICLOFENAC [Concomitant]
     Active Substance: DICLOFENAC
     Dosage: 1 UNK
     Route: 061
     Dates: start: 2017
  24. ALTEPLASE. [Concomitant]
     Active Substance: ALTEPLASE
     Dosage: 2 MILLIGRAM
     Route: 042
     Dates: start: 20190717, end: 20190717
  25. ALBUTEROL [SALBUTAMOL] [Concomitant]
     Active Substance: ALBUTEROL
     Dosage: 2.5 MILLIGRAM
     Route: 050
     Dates: start: 2015
  26. TYLENOL [Concomitant]
     Active Substance: ACETAMINOPHEN
     Dosage: 650 MILLIGRAM
     Route: 048
     Dates: start: 20190607, end: 20190626
  27. ASPRIN [Concomitant]
     Active Substance: ASPIRIN
     Dosage: 81 MILLIGRAM
     Route: 048
     Dates: start: 2002, end: 20190531
  28. CALCIUM W/VITAMIN D [CALCIUM;ERGOCALCIFEROL] [Concomitant]
     Dosage: 600 MILLIGRAM
     Route: 048
     Dates: start: 2017
  29. COMBIVENT RESPIMAT [Concomitant]
     Active Substance: ALBUTEROL SULFATE\IPRATROPIUM BROMIDE
     Dosage: 1 UNK
     Route: 050
     Dates: start: 2018
  30. CALCIUM GLUCONATE. [Concomitant]
     Active Substance: CALCIUM GLUCONATE
     Dosage: 2 GRAM
     Route: 042
     Dates: start: 20190717, end: 20190717
  31. LASIX [Concomitant]
     Active Substance: FUROSEMIDE
     Dosage: 20-40 MILLIGRAM
     Dates: start: 20190717, end: 20190804
  32. DOXYCYCLINE. [Concomitant]
     Active Substance: DOXYCYCLINE
     Dosage: 100 MILLIGRAM
     Route: 048
     Dates: start: 20190515, end: 20190522

REACTIONS (3)
  - Dyspnoea [Recovered/Resolved]
  - Acute kidney injury [Recovered/Resolved]
  - Acute kidney injury [Recovered/Resolved]

NARRATIVE: CASE EVENT DATE: 20190718
